FAERS Safety Report 12294704 (Version 2)
Quarter: 2016Q2

REPORT INFORMATION
  Report Type: Report from Study
  Country: CA (occurrence: CA)
  Receive Date: 20160422
  Receipt Date: 20160519
  Transmission Date: 20160815
  Serious: Yes (Other)
  Sender: FDA-Public Use
  Company Number: PHHY2016CA022288

PATIENT
  Age: 18 Year
  Sex: Female

DRUGS (2)
  1. COSENTYX [Suspect]
     Active Substance: SECUKINUMAB
     Indication: PSORIASIS
     Dosage: 300 MG, QW
     Route: 058
     Dates: start: 20160211
  2. COSENTYX [Suspect]
     Active Substance: SECUKINUMAB
     Dosage: 300 MG, QMO
     Route: 058

REACTIONS (9)
  - Rash [Unknown]
  - Ear infection [Unknown]
  - Pruritus [Unknown]
  - Drug ineffective [Unknown]
  - Paraesthesia [Unknown]
  - Psoriasis [Unknown]
  - Therapeutic response decreased [Unknown]
  - Eczema [Unknown]
  - Erythema [Unknown]

NARRATIVE: CASE EVENT DATE: 201602
